FAERS Safety Report 4589725-5 (Version None)
Quarter: 2005Q1

REPORT INFORMATION
  Report Type: 
  Country: None (occurrence: None)
  Receive Date: 20050217
  Receipt Date: 20050131
  Transmission Date: 20050727
  Serious: Yes (Other)
  Sender: FDA-Public Use
  Company Number: US014641

PATIENT

DRUGS (5)
  1. ACTIQ [Suspect]
     Indication: MIGRAINE
  2. OXYCONTIN [Concomitant]
  3. FENTANYL [Concomitant]
  4. HYDROCODONE/ACETAMINOPHEN [Concomitant]
  5. ACETAMINOPHEN AND OXYCODONE HCL [Concomitant]

REACTIONS (4)
  - DRUG ABUSER [None]
  - DRUG DEPENDENCE [None]
  - OVERDOSE [None]
  - ROAD TRAFFIC ACCIDENT [None]
